FAERS Safety Report 11166885 (Version 2)
Quarter: 2015Q2

REPORT INFORMATION
  Report Type: Spontaneous
  Country: DE (occurrence: DE)
  Receive Date: 20150605
  Receipt Date: 20150624
  Transmission Date: 20150821
  Serious: Yes (Hospitalization, Disabling, Other)
  Sender: FDA-Public Use
  Company Number: DE-009507513-1506DEU002313

PATIENT
  Age: 82 Year
  Sex: Female

DRUGS (7)
  1. VELMETIA [Suspect]
     Active Substance: METFORMIN\SITAGLIPTIN
     Indication: TYPE 2 DIABETES MELLITUS
     Dosage: TOTAL DAILY DOSE 50 MG/850 MG
     Route: 048
     Dates: start: 2011
  2. TEBONIN [Concomitant]
     Active Substance: GINKGO
     Dosage: UNK, ONCE
  3. BISOPROLOL [Concomitant]
     Active Substance: BISOPROLOL
     Dosage: UNK, ONCE
  4. CIBADREX [Concomitant]
     Active Substance: BENAZEPRIL HYDROCHLORIDE
  5. L-THYROXIN HENNING [Concomitant]
     Dosage: UNK, ONCE
  6. AMLODIPIN HEXAL (AMLODIPINE BESYLATE) [Concomitant]
     Dosage: UNK, ONCE
  7. VELMETIA [Suspect]
     Active Substance: METFORMIN\SITAGLIPTIN
     Indication: TYPE 2 DIABETES MELLITUS
     Dosage: TOTAL DAILY DOSE 100 MG/2000 MG
     Route: 048
     Dates: start: 20141208

REACTIONS (3)
  - Diarrhoea [Not Recovered/Not Resolved]
  - Cholelithiasis [Recovered/Resolved]
  - Asthenia [Unknown]

NARRATIVE: CASE EVENT DATE: 2012
